FAERS Safety Report 9562940 (Version 1)
Quarter: 2013Q3

REPORT INFORMATION
  Report Type: Spontaneous
  Country: IL (occurrence: IL)
  Receive Date: 20130927
  Receipt Date: 20130927
  Transmission Date: 20140515
  Serious: Yes (Hospitalization, Other)
  Sender: FDA-Public Use
  Company Number: IL-ELI_LILLY_AND_COMPANY-IL201309008225

PATIENT
  Age: 36 Year
  Sex: Female
  Weight: 79 kg

DRUGS (7)
  1. FORTEO [Suspect]
     Indication: CALCIUM METABOLISM DISORDER
     Dosage: 40 UG, QD
     Route: 065
  2. FORTEO [Suspect]
     Dosage: 30 UG, QD
     Route: 058
  3. FORTEO [Suspect]
     Dosage: 20 UG, QD
     Route: 058
  4. FORTEO [Suspect]
     Dosage: 30 UG, QD
     Route: 058
  5. FORTEO [Suspect]
     Dosage: 20 UG, QD
     Route: 058
  6. CALCIUM [Concomitant]
     Dosage: 1200 MG, UNK
  7. ALFACALCIDOL [Concomitant]

REACTIONS (10)
  - Hypocalcaemia [Recovered/Resolved]
  - Tetany [Recovered/Resolved]
  - Paraesthesia [Recovered/Resolved]
  - Drug dose omission [Recovered/Resolved]
  - Hypercalcaemia [Recovered/Resolved]
  - Exposure during pregnancy [Unknown]
  - Blood phosphorus increased [Recovered/Resolved]
  - Off label use [Unknown]
  - Overdose [Unknown]
  - Wrong technique in drug usage process [Unknown]
